FAERS Safety Report 8503220-X (Version None)
Quarter: 2012Q3

REPORT INFORMATION
  Report Type: 
  Country: None (occurrence: None)
  Receive Date: 20120711
  Receipt Date: 20120625
  Transmission Date: 20120928
  Serious: No
  Sender: FDA-Public Use
  Company Number: US-ASTRAZENECA-2012SE42995

PATIENT
  Age: 46 Year
  Sex: Female
  Weight: 70.3 kg

DRUGS (3)
  1. SYMBICORT [Suspect]
     Indication: VOCAL CORD DISORDER
     Dosage: 2 PUFFS, TWO TIMES A DAY
     Route: 055
     Dates: start: 20120401
  2. SEROQUEL XR [Suspect]
     Indication: DEPRESSION
     Route: 048
     Dates: start: 20120207
  3. OMEPRAZOLE [Concomitant]
     Indication: GASTROOESOPHAGEAL REFLUX DISEASE
     Dosage: DALY
     Route: 048
     Dates: start: 20120101

REACTIONS (3)
  - LARYNGITIS ALLERGIC [None]
  - OROPHARYNGEAL PAIN [None]
  - OFF LABEL USE [None]
